FAERS Safety Report 9263522 (Version 2)
Quarter: 2013Q2

REPORT INFORMATION
  Report Type: Spontaneous
  Country: SE (occurrence: SE)
  Receive Date: 20130430
  Receipt Date: 20130507
  Transmission Date: 20140414
  Serious: Yes (Death)
  Sender: FDA-Public Use
  Company Number: SE-ROCHE-1218916

PATIENT
  Age: 70 Year
  Sex: Male

DRUGS (9)
  1. MABTHERA [Suspect]
     Indication: RHEUMATOID ARTHRITIS
     Route: 042
     Dates: start: 2007
  2. MABTHERA [Suspect]
     Route: 065
     Dates: start: 20120919
  3. MABTHERA [Suspect]
     Route: 065
     Dates: start: 20121002
  4. SIMVASTATIN [Concomitant]
  5. ACICLOVIR [Concomitant]
  6. FURIX [Concomitant]
  7. PARACETAMOL [Concomitant]
  8. TROMBYL [Concomitant]
  9. ZANTAC [Concomitant]

REACTIONS (1)
  - Encephalitis [Fatal]
